FAERS Safety Report 6470519-0 (Version None)
Quarter: 2009Q4

REPORT INFORMATION
  Report Type: 
  Country: None (occurrence: None)
  Receive Date: 20091119
  Receipt Date: 20090729
  Transmission Date: 20100525
  Serious: No
  Sender: FDA-Public Use
  Company Number: WAES 0906USA00287

PATIENT
  Age: 71 Year
  Sex: Male

DRUGS (12)
  1. JANUVIA [Suspect]
     Indication: TYPE 2 DIABETES MELLITUS
     Dosage: 50 MG/BID/PO, 100 MG/DAILY PO
     Route: 048
     Dates: end: 20090615
  2. JANUVIA [Suspect]
     Indication: TYPE 2 DIABETES MELLITUS
     Dosage: 50 MG/BID/PO, 100 MG/DAILY PO
     Route: 048
     Dates: start: 20080101
  3. COZAAR [Concomitant]
  4. LOPID [Concomitant]
  5. PLAVIX [Concomitant]
  6. PRILOSEC [Concomitant]
  7. ATENOLOL [Concomitant]
  8. CITALOPRAM HYDROBROMIDE [Concomitant]
  9. DILTIAZEM HYDROCHLORIDE [Concomitant]
  10. GLIPIZIDE [Concomitant]
  11. METFORMIN HCL [Concomitant]
  12. RANITIDINE [Concomitant]

REACTIONS (6)
  - BLOOD GLUCOSE ABNORMAL [None]
  - BLOOD GLUCOSE INCREASED [None]
  - COUGH [None]
  - DRUG INEFFECTIVE [None]
  - GLYCOSYLATED HAEMOGLOBIN INCREASED [None]
  - INAPPROPRIATE SCHEDULE OF DRUG ADMINISTRATION [None]
